FAERS Safety Report 22359567 (Version 1)
Quarter: 2023Q2

REPORT INFORMATION
  Report Type: Spontaneous
  Country: KR (occurrence: KR)
  Receive Date: 20230524
  Receipt Date: 20230524
  Transmission Date: 20230721
  Serious: Yes (Hospitalization, Other)
  Sender: FDA-Public Use
  Company Number: KR-Accord-359456

PATIENT
  Age: 52 Year
  Sex: Female

DRUGS (3)
  1. LEUPROLIDE [Suspect]
     Active Substance: LEUPROLIDE
     Indication: Breast cancer
     Dosage: 20 DAYS PRIOR
     Route: 058
  2. PREDNISOLONE [Concomitant]
     Active Substance: PREDNISOLONE
     Indication: Asthma
     Dosage: DAILY
     Dates: start: 202109
  3. LEUPROLIDE [Suspect]
     Active Substance: LEUPROLIDE
     Indication: Invasive ductal breast carcinoma
     Route: 058

REACTIONS (2)
  - Pituitary apoplexy [Recovered/Resolved]
  - Meningitis aseptic [Recovered/Resolved]
